FAERS Safety Report 20036599 (Version 3)
Quarter: 2025Q4

REPORT INFORMATION
  Report Type: Spontaneous
  Country: US (occurrence: US)
  Receive Date: 20211105
  Receipt Date: 20251216
  Transmission Date: 20260118
  Serious: No
  Sender: SANOFI AVENTIS
  Company Number: US-SANOFI-00835024

PATIENT
  Sex: Male

DRUGS (3)
  1. TOUJEO [Suspect]
     Active Substance: INSULIN GLARGINE
     Indication: Type 2 diabetes mellitus
     Dosage: 80 IU, QD
  2. TOUJEO [Suspect]
     Active Substance: INSULIN GLARGINE
     Dosage: 75 IU, Q12H
     Route: 065
     Dates: start: 2011
  3. TOUJEO [Suspect]
     Active Substance: INSULIN GLARGINE
     Dosage: 45 UNITS AM 40 UNITS PM, BID

REACTIONS (5)
  - Weight decreased [Unknown]
  - Blood glucose decreased [Unknown]
  - Intentional dose omission [Unknown]
  - Inappropriate schedule of product administration [Unknown]
  - Intentional product misuse [Unknown]
